FAERS Safety Report 8933013 (Version 5)
Quarter: 2013Q1

REPORT INFORMATION
  Report Type: Spontaneous
  Country: GB (occurrence: GB)
  Receive Date: 20121129
  Receipt Date: 20130308
  Transmission Date: 20140127
  Serious: Yes (Hospitalization, Other)
  Sender: FDA-Public Use
  Company Number: PHFR2012GB006168

PATIENT
  Sex: Male

DRUGS (3)
  1. CLOZARIL [Suspect]
     Indication: SCHIZOPHRENIA
     Dosage: UNK UKN, UNK
     Route: 048
     Dates: start: 20010701
  2. CLOZARIL [Suspect]
     Dosage: 300 MG, QD
     Dates: start: 20121127
  3. CLOZARIL [Suspect]
     Dosage: 100 MG, MORNING
     Route: 048
     Dates: start: 20121128

REACTIONS (3)
  - Road traffic accident [Unknown]
  - Fracture [Unknown]
  - Injury [Unknown]
